FAERS Safety Report 10345618 (Version 3)
Quarter: 2014Q3

REPORT INFORMATION
  Report Type: Spontaneous
  Country: US (occurrence: US)
  Receive Date: 20140728
  Receipt Date: 20140827
  Transmission Date: 20150326
  Serious: Yes (Life-Threatening, Hospitalization, Disabling, Other)
  Sender: FDA-Public Use
  Company Number: US-009507513-1407USA009852

PATIENT
  Age: 60 Year
  Sex: Female

DRUGS (6)
  1. CALTRATE WITH VITAMIN D [Concomitant]
     Active Substance: CALCIUM CARBONATE\VITAMIN D
     Indication: OSTEOPOROSIS
     Dosage: 600 DF, UNK
     Route: 048
  2. FOSAMAX [Suspect]
     Active Substance: ALENDRONATE SODIUM
     Indication: OSTEOPOROSIS PROPHYLAXIS
     Dosage: ONCE WEEKLY TABLET 70MG, BLISTER OF 1 TABLET (1X1)
     Route: 048
     Dates: start: 2003, end: 201309
  3. WELLBUTRIN [Concomitant]
     Active Substance: BUPROPION HYDROCHLORIDE
     Indication: DEPRESSION
     Dosage: 150 DF, UNK
     Route: 048
  4. PAX (DIAZEPAM) [Concomitant]
     Indication: DEPRESSION
     Dosage: 80 DF, UNK
     Route: 048
  5. MEVACOR [Concomitant]
     Active Substance: LOVASTATIN
     Indication: LIPIDS INCREASED
     Dosage: 40 DF, UNK
     Route: 048
  6. PROLIA [Concomitant]
     Active Substance: DENOSUMAB
     Dosage: UNK
     Dates: start: 201309

REACTIONS (4)
  - Femur fracture [Not Recovered/Not Resolved]
  - Pain in extremity [Unknown]
  - Surgery [Not Recovered/Not Resolved]
  - Fall [Not Recovered/Not Resolved]

NARRATIVE: CASE EVENT DATE: 20140505
